FAERS Safety Report 6518570-6 (Version None)
Quarter: 2009Q4

REPORT INFORMATION
  Report Type: 
  Country: None (occurrence: None)
  Receive Date: 20091227
  Receipt Date: 20091218
  Transmission Date: 20100525
  Serious: Yes (Hospitalization, Other)
  Sender: FDA-Public Use
  Company Number: US-JNJFOC-20091206434

PATIENT
  Sex: Female
  Weight: 57.61 kg

DRUGS (5)
  1. DURAGESIC-100 [Suspect]
     Indication: PAIN
     Route: 062
  2. DURAGESIC-100 [Suspect]
     Route: 062
  3. TRAMADOL HCL [Concomitant]
     Indication: PAIN
     Route: 048
  4. SYNTHROID [Concomitant]
     Indication: THYROID DISORDER
     Route: 048
  5. PREVACID [Concomitant]
     Indication: GASTRIC DISORDER
     Route: 048

REACTIONS (3)
  - ARTHRITIS [None]
  - DRUG EFFECT DECREASED [None]
  - GAIT DISTURBANCE [None]
